FAERS Safety Report 17326577 (Version 1)
Quarter: 2020Q1

REPORT INFORMATION
  Report Type: Spontaneous
  Country: US (occurrence: US)
  Receive Date: 20200127
  Receipt Date: 20200127
  Transmission Date: 20200409
  Serious: Yes (Hospitalization)
  Sender: FDA-Public Use
  Company Number: US-PIRAMAL ENTERPRISES LIMITED-2019-PEL-000137

PATIENT

DRUGS (6)
  1. GABLOFEN [Suspect]
     Active Substance: BACLOFEN
     Indication: MUSCLE SPASTICITY
     Dosage: 279.65 MICROGRAM PER DAY
     Route: 037
  2. BACLOFEN. [Suspect]
     Active Substance: BACLOFEN
     Indication: PRODUCT USED FOR UNKNOWN INDICATION
     Dosage: UNK
  3. GABLOFEN [Suspect]
     Active Substance: BACLOFEN
     Dosage: 150 MICROGRAM BOLUS (3 MLS OF 50UG)
     Route: 037
  4. GABLOFEN [Suspect]
     Active Substance: BACLOFEN
     Dosage: 75 MICROGRAM BOLUS
     Route: 037
  5. GABLOFEN [Suspect]
     Active Substance: BACLOFEN
     Dosage: 150 MICROGRAM SINGLE BOLUS
     Route: 037
  6. GABLOFEN [Suspect]
     Active Substance: BACLOFEN
     Dosage: UNK
     Route: 037

REACTIONS (2)
  - Urinary tract infection [Unknown]
  - Withdrawal syndrome [Not Recovered/Not Resolved]
